FAERS Safety Report 17561310 (Version 1)
Quarter: 2020Q1

REPORT INFORMATION
  Report Type: Spontaneous
  Country: IT (occurrence: IT)
  Receive Date: 20200319
  Receipt Date: 20200319
  Transmission Date: 20200409
  Serious: Yes (Hospitalization, Other)
  Sender: FDA-Public Use
  Company Number: IT-SA-2020SA067464

PATIENT
  Age: 44 Year
  Sex: Female
  Weight: 130 kg

DRUGS (2)
  1. COUMADIN [Concomitant]
     Active Substance: WARFARIN SODIUM
     Indication: PULMONARY EMBOLISM
     Route: 048
  2. LEMTRADA [Suspect]
     Active Substance: ALEMTUZUMAB
     Indication: MULTIPLE SCLEROSIS
     Dosage: 12 MG, QCY
     Route: 042
     Dates: start: 20180507, end: 20190509

REACTIONS (5)
  - Oedema [Unknown]
  - Streptococcal infection [Unknown]
  - Erysipelas [Unknown]
  - Skin ulcer [Unknown]
  - Flushing [Unknown]
